FAERS Safety Report 13158297 (Version 1)
Quarter: 2017Q1

REPORT INFORMATION
  Report Type: Spontaneous
  Country: US (occurrence: US)
  Receive Date: 20170126
  Receipt Date: 20170126
  Transmission Date: 20170428
  Serious: No
  Sender: FDA-Public Use
  Company Number: None

PATIENT
  Age: 58 Year
  Sex: Male
  Weight: 85.7 kg

DRUGS (1)
  1. PACLITAXEL. [Suspect]
     Active Substance: PACLITAXEL
     Indication: NON-SMALL CELL LUNG CANCER
     Route: 042
     Dates: start: 20100421, end: 20100421

REACTIONS (6)
  - Hyperhidrosis [None]
  - Syncope [None]
  - Flushing [None]
  - Dyspnoea [None]
  - Wheezing [None]
  - Tachycardia [None]

NARRATIVE: CASE EVENT DATE: 20100421
